FAERS Safety Report 18127031 (Version 2)
Quarter: 2020Q4

REPORT INFORMATION
  Report Type: Spontaneous
  Country: US (occurrence: US)
  Receive Date: 20200810
  Receipt Date: 20201126
  Transmission Date: 20210113
  Serious: Yes (Hospitalization, Other)
  Sender: FDA-Public Use
  Company Number: US-ABBVIE-20K-163-3517843-00

PATIENT
  Sex: Male
  Weight: 81.72 kg

DRUGS (2)
  1. SYNTHROID [Suspect]
     Active Substance: LEVOTHYROXINE SODIUM
     Indication: THYROIDECTOMY
     Route: 048
  2. LISINOPRIL. [Concomitant]
     Active Substance: LISINOPRIL
     Indication: PRODUCT USED FOR UNKNOWN INDICATION

REACTIONS (6)
  - Allergic sinusitis [Unknown]
  - Toxicity to various agents [Unknown]
  - Papillary thyroid cancer [Unknown]
  - Feeling abnormal [Unknown]
  - Illness [Unknown]
  - Insomnia [Unknown]

NARRATIVE: CASE EVENT DATE: 1990
